FAERS Safety Report 5322435-5 (Version None)
Quarter: 2007Q2

REPORT INFORMATION
  Report Type: 
  Country: None (occurrence: None)
  Receive Date: 20070511
  Receipt Date: 20070502
  Transmission Date: 20071010
  Serious: Yes (Other)
  Sender: FDA-Public Use
  Company Number: US-ELI_LILLY_AND_COMPANY-US200705000558

PATIENT
  Age: 84 Year
  Sex: Female

DRUGS (2)
  1. FORTEO [Suspect]
     Dosage: UNK D/F, UNK
     Dates: start: 20051001, end: 20060101
  2. FORTEO [Suspect]
     Dosage: UNK D/F, UNK
     Dates: start: 20070420

REACTIONS (5)
  - CARDIAC VALVE DISEASE [None]
  - FALL [None]
  - HIP FRACTURE [None]
  - INSOMNIA [None]
  - OXYGEN SATURATION DECREASED [None]
